FAERS Safety Report 8508175-X (Version None)
Quarter: 2012Q3

REPORT INFORMATION
  Report Type: 
  Country: None (occurrence: None)
  Receive Date: 20120709
  Receipt Date: 20120709
  Transmission Date: 20120928
  Serious: Yes (Other)
  Sender: FDA-Public Use
  Company Number: None

PATIENT

DRUGS (2)
  1. ELAVIL [Suspect]
     Dosage: ORAL
     Route: 048
  2. ELAVIL [Suspect]
     Dosage: ORAL
     Route: 048

REACTIONS (3)
  - MEDICATION ERROR [None]
  - INCORRECT DOSE ADMINISTERED [None]
  - DRUG DISPENSING ERROR [None]
